FAERS Safety Report 18039654 (Version 2)
Quarter: 2022Q1

REPORT INFORMATION
  Report Type: Spontaneous
  Country: JP (occurrence: JP)
  Receive Date: 20200717
  Receipt Date: 20220130
  Transmission Date: 20220423
  Serious: Yes (Other)
  Sender: FDA-Public Use
  Company Number: JP-JAZZ-2020-JP-008967

PATIENT
  Age: 35 Year
  Sex: Female
  Weight: 57 kg

DRUGS (6)
  1. DEFITELIO [Suspect]
     Active Substance: DEFIBROTIDE SODIUM
     Indication: Venoocclusive liver disease
     Dosage: 25 MILLIGRAM/KILOGRAM, QD
     Route: 042
     Dates: start: 20190925, end: 20191010
  2. NONTHRON [Concomitant]
     Indication: Product used for unknown indication
     Dosage: UNK
     Dates: start: 20190927, end: 20190928
  3. NONTHRON [Concomitant]
     Dosage: UNK
     Dates: start: 20191003, end: 20191004
  4. NONTHRON [Concomitant]
     Dosage: UNK
     Dates: start: 20191008, end: 20191102
  5. NAFAMOSTAT MESYLATE [Concomitant]
     Active Substance: NAFAMOSTAT MESYLATE
     Indication: Product used for unknown indication
     Dosage: UNK
     Dates: start: 20190928, end: 20191003
  6. NAFAMOSTAT MESYLATE [Concomitant]
     Active Substance: NAFAMOSTAT MESYLATE
     Dosage: UNK
     Dates: start: 20191005, end: 20191007

REACTIONS (3)
  - Haemorrhage subcutaneous [Recovered/Resolved]
  - Subdural haematoma [Recovering/Resolving]
  - Mouth haemorrhage [Recovered/Resolved]

NARRATIVE: CASE EVENT DATE: 20190929
